FAERS Safety Report 4944780-5 (Version None)
Quarter: 2006Q1

REPORT INFORMATION
  Report Type: 
  Country: None (occurrence: None)
  Receive Date: 20060118
  Receipt Date: 20050812
  Transmission Date: 20060701
  Serious: Yes (Hospitalization)
  Sender: FDA-Public Use
  Company Number: US-JNJFOC-20050701456

PATIENT
  Age: 49 Year
  Sex: Male

DRUGS (3)
  1. DOXIL [Suspect]
     Indication: NEOPLASM MALIGNANT
     Dosage: 88 MG, INTRAVENOUS
     Route: 042
     Dates: start: 20050308
  2. DOXIL [Suspect]
     Indication: NEOPLASM MALIGNANT
     Dosage: 88 MG, INTRAVENOUS
     Route: 042
     Dates: start: 20050406
  3. DOXIL [Suspect]
     Indication: NEOPLASM MALIGNANT
     Dosage: 88 MG, INTRAVENOUS
     Route: 042
     Dates: start: 20050427

REACTIONS (2)
  - PALMAR-PLANTAR ERYTHRODYSAESTHESIA SYNDROME [None]
  - SKIN TOXICITY [None]
